FAERS Safety Report 5286774-9 (Version None)
Quarter: 2007Q2

REPORT INFORMATION
  Report Type: 
  Country: None (occurrence: None)
  Receive Date: 20070404
  Receipt Date: 20070322
  Transmission Date: 20071010
  Serious: Yes (Hospitalization)
  Sender: FDA-Public Use
  Company Number: DE-ROCHE-489427

PATIENT
  Age: 79 Year
  Sex: Female

DRUGS (15)
  1. XELODA [Suspect]
     Indication: CHEMOTHERAPY
     Route: 065
  2. HERCEPTIN [Suspect]
     Route: 042
     Dates: start: 20070215
  3. NAVELBINE [Suspect]
     Indication: CHEMOTHERAPY
     Route: 065
  4. AROMASIN [Concomitant]
     Indication: HORMONE SUPPRESSION THERAPY
  5. TAMOXIFEN CITRATE [Concomitant]
     Indication: HORMONE SUPPRESSION THERAPY
  6. TAXOL [Concomitant]
     Indication: CHEMOTHERAPY
  7. BIPHOSPHONATE [Concomitant]
  8. AREDIA [Concomitant]
  9. ARIMIDEX [Concomitant]
     Indication: HORMONE SUPPRESSION THERAPY
  10. BETA BLOCKER NOS [Concomitant]
  11. METOPROLOL SUCCINATE [Concomitant]
  12. ESOMEPRAZOLE MAGNESIUM [Concomitant]
  13. MAGNESIUM VERLA [Concomitant]
  14. RAMIPRIL [Concomitant]
  15. CARBIMAZOLE [Concomitant]

REACTIONS (16)
  - ANOREXIA [None]
  - ASCITES [None]
  - DEPRESSION [None]
  - DISEASE PROGRESSION [None]
  - GASTRIC POLYPS [None]
  - GENERAL PHYSICAL HEALTH DETERIORATION [None]
  - HYPERTHYROIDISM [None]
  - HYPOGLYCAEMIA [None]
  - INSULINOMA [None]
  - METASTATIC NEOPLASM [None]
  - PLEURAL EFFUSION [None]
  - POLYNEUROPATHY [None]
  - SLEEP DISORDER [None]
  - SPLEEN SCAN ABNORMAL [None]
  - SYNCOPE [None]
  - VENTRICULAR EXTRASYSTOLES [None]
